FAERS Safety Report 9124015 (Version 2)
Quarter: 2013Q1

REPORT INFORMATION
  Report Type: Report from Study
  Country: DE (occurrence: DE)
  Receive Date: 20130227
  Receipt Date: 20130315
  Transmission Date: 20140127
  Serious: Yes (Hospitalization)
  Sender: FDA-Public Use
  Company Number: DE-GENZYME-CAMP-1002754

PATIENT
  Age: 49 Year
  Sex: Female
  Weight: 60 kg

DRUGS (14)
  1. ALEMTUZUMAB [Suspect]
     Indication: MULTIPLE SCLEROSIS
     Dosage: UNK UNK, UNK
     Route: 065
     Dates: start: 20110921, end: 20110923
  2. ALEMTUZUMAB [Suspect]
     Dosage: 12 MG, QD
     Route: 065
     Dates: start: 20100608, end: 20100610
  3. ALEMTUZUMAB [Suspect]
     Dosage: 12 MG, QD
     Route: 065
     Dates: start: 20090602, end: 20090606
  4. METHYLPREDNISOLON [Concomitant]
     Indication: MULTIPLE SCLEROSIS
     Dosage: 1 G, QD
     Route: 065
     Dates: start: 20090602, end: 20090604
  5. METHYLPREDNISOLON [Concomitant]
     Indication: MULTIPLE SCLEROSIS
     Dosage: 1 G, QD
     Route: 065
     Dates: start: 20100608, end: 20100610
  6. METHYLPREDNISOLON [Concomitant]
     Indication: MULTIPLE SCLEROSIS
     Dosage: 1 G, QD
     Route: 065
     Dates: start: 20110921, end: 20110923
  7. CITALOPRAM [Concomitant]
     Indication: DEPRESSION
     Dosage: 10 MG, QD
     Route: 048
     Dates: start: 20120715
  8. FAMPRIDINE [Concomitant]
     Indication: WALKING DISABILITY
  9. BERLOSIN [Concomitant]
     Indication: PRODUCT USED FOR UNKNOWN INDICATION
  10. METOPROLOL [Concomitant]
     Indication: TACHYCARDIA
     Dosage: 47.5 MG, BID
     Route: 048
     Dates: start: 20120731
  11. FERRO SANOL COMP [Concomitant]
     Indication: PRODUCT USED FOR UNKNOWN INDICATION
  12. CALCILAC [Concomitant]
     Indication: HYPOCALCAEMIA
     Dosage: 500 MG, UNK
     Route: 048
     Dates: start: 20130201
  13. LYRICA [Concomitant]
     Indication: PAIN PROPHYLAXIS
     Dosage: 75 MG, BID
     Route: 048
     Dates: start: 20120711
  14. ASCORVIT [Concomitant]
     Indication: PROPHYLAXIS
     Dosage: 200 MG, TID
     Route: 048
     Dates: start: 20121116

REACTIONS (1)
  - Basedow^s disease [Not Recovered/Not Resolved]
